FAERS Safety Report 5844907-7 (Version None)
Quarter: 2008Q3

REPORT INFORMATION
  Report Type: 
  Country: None (occurrence: None)
  Receive Date: 20080813
  Receipt Date: 20080813
  Transmission Date: 20090109
  Serious: Yes (Hospitalization)
  Sender: FDA-Public Use
  Company Number: None

PATIENT
  Sex: Female
  Weight: 81.6475 kg

DRUGS (1)
  1. YAZ [Suspect]
     Indication: MENORRHAGIA
     Dosage: 1 TABLET DAILY INJ
     Dates: start: 20080707, end: 20080717

REACTIONS (1)
  - PULMONARY EMBOLISM [None]
